FAERS Safety Report 9271753 (Version 2)
Quarter: 2013Q2

REPORT INFORMATION
  Report Type: Spontaneous
  Country: US (occurrence: US)
  Receive Date: 20130506
  Receipt Date: 20130611
  Transmission Date: 20140414
  Serious: Yes (Other)
  Sender: FDA-Public Use
  Company Number: US-BAYER-2013-055787

PATIENT
  Age: 33 Year
  Sex: Female
  Weight: 89.34 kg

DRUGS (1)
  1. MIRENA [Suspect]
     Indication: CONTRACEPTION
     Dosage: 20 MCG/24HR, CONT
     Route: 015
     Dates: start: 20110527, end: 20130430

REACTIONS (4)
  - Ectopic pregnancy with intrauterine device [None]
  - Vaginal haemorrhage [None]
  - Abdominal pain [None]
  - Drug ineffective [None]
